FAERS Safety Report 12916034 (Version 1)
Quarter: 2016Q4

REPORT INFORMATION
  Report Type: Spontaneous
  Country: US (occurrence: US)
  Receive Date: 20161104
  Receipt Date: 20161104
  Transmission Date: 20170207
  Serious: No
  Sender: FDA-Public Use
  Company Number: US-SA-2016SA165081

PATIENT
  Sex: Male

DRUGS (1)
  1. UNISOM SLEEPTABS [Suspect]
     Active Substance: DOXYLAMINE SUCCINATE
     Dosage: FREQUENCY : NIGHTLY
     Route: 065

REACTIONS (6)
  - Psychomotor hyperactivity [Not Recovered/Not Resolved]
  - Somnolence [Not Recovered/Not Resolved]
  - Palpitations [Not Recovered/Not Resolved]
  - Anxiety [Not Recovered/Not Resolved]
  - Poor quality sleep [Not Recovered/Not Resolved]
  - Dyspnoea [Not Recovered/Not Resolved]
